FAERS Safety Report 14383065 (Version 1)
Quarter: 2018Q1

REPORT INFORMATION
  Report Type: Spontaneous
  Country: ES (occurrence: ES)
  Receive Date: 20180114
  Receipt Date: 20180114
  Transmission Date: 20180509
  Serious: Yes (Other)
  Sender: FDA-Public Use
  Company Number: ES-UCBSA-2018000898

PATIENT
  Age: 60 Year
  Sex: Female
  Weight: 70 kg

DRUGS (1)
  1. CIMZIA [Suspect]
     Active Substance: CERTOLIZUMAB PEGOL
     Indication: RHEUMATOID ARTHRITIS
     Dosage: 400 MG
     Route: 058

REACTIONS (1)
  - Cerebral haemorrhage [Recovered/Resolved]

NARRATIVE: CASE EVENT DATE: 20170213
